FAERS Safety Report 6039815-5 (Version None)
Quarter: 2009Q1

REPORT INFORMATION
  Report Type: 
  Country: None (occurrence: None)
  Receive Date: 20090116
  Receipt Date: 20090102
  Transmission Date: 20090719
  Serious: Yes (Other)
  Sender: FDA-Public Use
  Company Number: US-AVENTIS-200815485US

PATIENT
  Age: 59 Year
  Sex: Male

DRUGS (2)
  1. LANTUS [Suspect]
     Dosage: DOSE: 10 INCREASED TO 15
     Route: 058
  2. OPTICLIK GREY [Suspect]

REACTIONS (6)
  - BLOOD GLUCOSE INCREASED [None]
  - DEVICE FAILURE [None]
  - DRUG INTERACTION [None]
  - LABORATORY TEST ABNORMAL [None]
  - LOSS OF CONSCIOUSNESS [None]
  - NO ADVERSE EVENT [None]
